APPROVED DRUG PRODUCT: SARAFEM
Active Ingredient: FLUOXETINE HYDROCHLORIDE
Strength: EQ 10MG BASE **Federal Register determination that product was not discontinued or withdrawn for safety or effectiveness reasons**
Dosage Form/Route: TABLET;ORAL
Application: N021860 | Product #001
Applicant: ALLERGAN PHARMACEUTICALS INTERNATIONAL LTD
Approved: May 19, 2006 | RLD: Yes | RS: No | Type: DISCN